FAERS Safety Report 4673519-6 (Version None)
Quarter: 2005Q2

REPORT INFORMATION
  Report Type: 
  Country: None (occurrence: None)
  Receive Date: 20050523
  Receipt Date: 20050510
  Transmission Date: 20051028
  Serious: Yes (Other)
  Sender: FDA-Public Use
  Company Number: 2005072678

PATIENT
  Sex: Female

DRUGS (1)
  1. DEPO-PROVERA [Suspect]
     Indication: CONTRACEPTION
     Dosage: FIRST INJECTION
     Dates: start: 20010101, end: 20010101

REACTIONS (4)
  - ABORTION [None]
  - BREAST SWELLING [None]
  - BREAST TENDERNESS [None]
  - PREGNANCY WITH INJECTABLE CONTRACEPTIVE [None]
